FAERS Safety Report 16644651 (Version 4)
Quarter: 2019Q4

REPORT INFORMATION
  Report Type: Spontaneous
  Country: US (occurrence: US)
  Receive Date: 20190729
  Receipt Date: 20191230
  Transmission Date: 20200122
  Serious: No
  Sender: FDA-Public Use
  Company Number: US-SA-2019SA200196

PATIENT
  Age: 45 Year
  Sex: Male

DRUGS (3)
  1. DUPIXENT [Suspect]
     Active Substance: DUPILUMAB
     Indication: DERMATITIS ATOPIC
     Dosage: 600 MG, 1X
     Route: 058
     Dates: start: 20190629, end: 20190629
  2. OTEZLA [Concomitant]
     Active Substance: APREMILAST
  3. DUPIXENT [Suspect]
     Active Substance: DUPILUMAB
     Indication: PSORIASIS
     Dosage: 300 MG, QOW
     Route: 058
     Dates: start: 201907

REACTIONS (5)
  - Cerebral disorder [Not Recovered/Not Resolved]
  - Product use in unapproved indication [Unknown]
  - Malaise [Not Recovered/Not Resolved]
  - Psoriasis [Unknown]
  - Dermatitis atopic [Not Recovered/Not Resolved]

NARRATIVE: CASE EVENT DATE: 2019
